FAERS Safety Report 7035291-4 (Version None)
Quarter: 2010Q4

REPORT INFORMATION
  Report Type: 
  Country: None (occurrence: None)
  Receive Date: 20101008
  Receipt Date: 20100929
  Transmission Date: 20110411
  Serious: Yes (Hospitalization)
  Sender: FDA-Public Use
  Company Number: B0674785A

PATIENT
  Sex: Female

DRUGS (4)
  1. CLAVAMOX [Suspect]
     Indication: PHARYNGITIS
     Dosage: 4.04G PER DAY
     Route: 048
     Dates: start: 20100906, end: 20100913
  2. ASVERIN [Concomitant]
     Route: 048
  3. MUCODYNE [Concomitant]
     Route: 048
  4. ISODINE GARGLE [Concomitant]
     Route: 002

REACTIONS (3)
  - ECZEMA [None]
  - LYMPHOCYTE STIMULATION TEST POSITIVE [None]
  - URTICARIA [None]
